FAERS Safety Report 9011595 (Version 1)
Quarter: 2013Q1

REPORT INFORMATION
  Report Type: Report from Study
  Country: JP (occurrence: JP)
  Receive Date: 20130108
  Receipt Date: 20130108
  Transmission Date: 20140127
  Serious: Yes (Hospitalization)
  Sender: FDA-Public Use
  Company Number: JP-AMGEN-JPNCT2012084416

PATIENT
  Age: 71 Year
  Sex: Male
  Weight: 59 kg

DRUGS (15)
  1. DARBEPOETIN ALFA [Suspect]
     Indication: NEPHROGENIC ANAEMIA
     Dosage: 30 MUG, Q2WK
     Route: 058
     Dates: start: 20111031, end: 20111212
  2. DARBEPOETIN ALFA [Suspect]
     Dosage: 60 MUG, Q4WK
     Route: 058
     Dates: start: 20120116, end: 20120312
  3. DARBEPOETIN ALFA [Suspect]
     Dosage: 60 MUG, Q4WK
     Route: 058
     Dates: start: 20120416, end: 20120514
  4. DARBEPOETIN ALFA [Suspect]
     Dosage: 60 MUG, QD
     Route: 058
     Dates: start: 20120723, end: 20120723
  5. DARBEPOETIN ALFA [Suspect]
     Dosage: 120 MUG, QD
     Route: 058
     Dates: start: 20120924, end: 20120924
  6. ACTOS [Concomitant]
     Dosage: UNK
     Route: 048
  7. CADUET [Concomitant]
     Dosage: UNK
     Route: 048
  8. ALDACTONE A [Concomitant]
     Dosage: UNK
     Route: 048
  9. URINORM [Concomitant]
     Dosage: UNK
     Route: 048
  10. DIOVAN [Concomitant]
     Dosage: UNK
     Route: 048
  11. SODIUM BICARBONATE [Concomitant]
     Dosage: UNK
     Route: 048
  12. METHYCOBAL [Concomitant]
     Dosage: UNK
     Route: 048
  13. MIYA-BM [Concomitant]
     Dosage: UNK
     Route: 048
  14. COLONEL [Concomitant]
     Dosage: UNK
     Route: 048
  15. ACEBUTOLOL HYDROCHLORIDE [Concomitant]
     Dosage: UNK
     Route: 048

REACTIONS (1)
  - Tongue neoplasm malignant stage unspecified [Unknown]
